FAERS Safety Report 15696931 (Version 1)
Quarter: 2018Q4

REPORT INFORMATION
  Report Type: Spontaneous
  Country: US (occurrence: US)
  Receive Date: 20181206
  Receipt Date: 20181206
  Transmission Date: 20190205
  Serious: No
  Sender: FDA-Public Use
  Company Number: US-PFIZER INC-2018496033

PATIENT
  Age: 53 Year
  Sex: Male

DRUGS (1)
  1. EUCRISA [Suspect]
     Active Substance: CRISABOROLE
     Dosage: APPLY TO AFFECTED AREAS TWICE A DAY
     Dates: start: 201810

REACTIONS (1)
  - Drug ineffective [Unknown]
